FAERS Safety Report 8913441 (Version 1)
Quarter: 2012Q4

REPORT INFORMATION
  Report Type: Spontaneous
  Country: TW (occurrence: None)
  Receive Date: 20121113
  Receipt Date: 20121113
  Transmission Date: 20130627
  Serious: Yes (Other)
  Sender: FDA-Public Use
  Company Number: 2012100131

PATIENT
  Age: 29 Year
  Sex: Male

DRUGS (4)
  1. ZOLPIDEM [Suspect]
     Indication: INSOMNIA
     Dosage: (40 mg, 1 in 1 D)
     Dates: start: 2010
  2. ZOLPIDEM [Suspect]
     Indication: INSOMNIA
     Dosage: (30 mg, 1 in 1 D)
  3. ZOLPIDEM [Suspect]
     Indication: INSOMNIA
     Dosage: (20 mg, 1 in 1 D)
  4. DULOXETINE (DULOXETINE) [Concomitant]

REACTIONS (16)
  - Drug abuse [None]
  - Impaired driving ability [None]
  - Abnormal behaviour [None]
  - Impaired work ability [None]
  - Drug tolerance increased [None]
  - Anxiety [None]
  - Drug dependence [None]
  - Incorrect route of drug administration [None]
  - Carbuncle [None]
  - Injection site pain [None]
  - Injection site swelling [None]
  - Injection site warmth [None]
  - Injection site thrombosis [None]
  - Confusional state [None]
  - Communication disorder [None]
  - Emotional disorder [None]
